FAERS Safety Report 4419113-3 (Version None)
Quarter: 2004Q3

REPORT INFORMATION
  Report Type: 
  Country: None (occurrence: None)
  Receive Date: 20040809
  Receipt Date: 20040115
  Transmission Date: 20050211
  Serious: No
  Sender: FDA-Public Use
  Company Number: US-GLAXOSMITHKLINE-A0493469A

PATIENT
  Age: 41 Year
  Sex: Male

DRUGS (2)
  1. PAXIL [Suspect]
     Indication: PANIC DISORDER
     Dosage: 20MG PER DAY
     Route: 048
     Dates: start: 20020201, end: 20031201
  2. LIPITOR [Concomitant]

REACTIONS (2)
  - ANXIETY [None]
  - DEPRESSION [None]
